FAERS Safety Report 12812184 (Version 3)
Quarter: 2016Q4

REPORT INFORMATION
  Report Type: Report from Study
  Country: CN (occurrence: CN)
  Receive Date: 20161005
  Receipt Date: 20161102
  Transmission Date: 20170207
  Serious: Yes (Hospitalization)
  Sender: FDA-Public Use
  Company Number: PHHY2016CN133668

PATIENT
  Age: 52 Year
  Sex: Female
  Weight: 39 kg

DRUGS (10)
  1. TACROLIMUS. [Concomitant]
     Active Substance: TACROLIMUS
     Dosage: 2 OT, UNK
     Route: 065
     Dates: start: 20160722, end: 20160728
  2. TACROLIMUS. [Concomitant]
     Active Substance: TACROLIMUS
     Dosage: 1 OT, UNK
     Route: 065
     Dates: start: 20160829, end: 20160926
  3. MYFORTIC [Suspect]
     Active Substance: MYCOPHENOLATE SODIUM
     Indication: RENAL TRANSPLANT
     Dosage: 720 MG, QD
     Route: 048
     Dates: start: 20160707, end: 20160707
  4. MYFORTIC [Suspect]
     Active Substance: MYCOPHENOLATE SODIUM
     Dosage: 900 MG, QD
     Route: 048
     Dates: start: 20160805, end: 20160926
  5. TACROLIMUS. [Concomitant]
     Active Substance: TACROLIMUS
     Indication: PROPHYLAXIS AGAINST TRANSPLANT REJECTION
     Dosage: 3 OT, UNK
     Route: 065
     Dates: start: 20160710, end: 20160713
  6. MYFORTIC [Suspect]
     Active Substance: MYCOPHENOLATE SODIUM
     Dosage: 1440 MG, QD
     Route: 048
     Dates: start: 20160708, end: 20160713
  7. MYFORTIC [Suspect]
     Active Substance: MYCOPHENOLATE SODIUM
     Dosage: 1260 MG, QD
     Route: 048
     Dates: start: 20160714, end: 20160717
  8. MYFORTIC [Suspect]
     Active Substance: MYCOPHENOLATE SODIUM
     Dosage: 1080 MG, QD
     Route: 048
     Dates: start: 20160718, end: 20160804
  9. TACROLIMUS. [Concomitant]
     Active Substance: TACROLIMUS
     Dosage: 2.5 OT, UNK
     Route: 065
     Dates: start: 20160714, end: 20160721
  10. TACROLIMUS. [Concomitant]
     Active Substance: TACROLIMUS
     Dosage: 1.5 OT, UNK
     Route: 065
     Dates: start: 20160729, end: 20160828

REACTIONS (20)
  - Lung infection [Recovered/Resolved]
  - Blood alkaline phosphatase increased [Unknown]
  - Pyrexia [Recovered/Resolved]
  - Productive cough [Recovered/Resolved]
  - Pericardial effusion [Unknown]
  - Peripheral swelling [Unknown]
  - Neutrophil count increased [Unknown]
  - Carbohydrate antigen 19-9 increased [Unknown]
  - Heart rate increased [Unknown]
  - Chest discomfort [Unknown]
  - Procalcitonin increased [Unknown]
  - Cough [Recovered/Resolved]
  - Oedema peripheral [Unknown]
  - Haemoglobin decreased [Unknown]
  - Aspartate aminotransferase increased [Unknown]
  - Pneumonitis [Recovered/Resolved]
  - Gamma-glutamyltransferase increased [Unknown]
  - Alanine aminotransferase increased [Unknown]
  - Lymphadenopathy mediastinal [Unknown]
  - Blood pressure decreased [Unknown]

NARRATIVE: CASE EVENT DATE: 20160820
